FAERS Safety Report 5612378-1 (Version None)
Quarter: 2008Q1

REPORT INFORMATION
  Report Type: 
  Country: None (occurrence: None)
  Receive Date: 20080204
  Receipt Date: 20080122
  Transmission Date: 20080703
  Serious: Yes (Other)
  Sender: FDA-Public Use
  Company Number: ES-ROCHE-388957

PATIENT
  Age: 62 Year
  Sex: Female
  Weight: 67.5 kg

DRUGS (9)
  1. DACLIZUMAB [Suspect]
     Route: 042
     Dates: start: 20040908
  2. MYCOPHENOLATE MOFETIL [Suspect]
     Route: 048
     Dates: start: 20040907
  3. SIROLIMUS [Suspect]
     Route: 048
     Dates: start: 20040921
  4. PREDNISONE TAB [Suspect]
     Route: 048
     Dates: start: 20040908
  5. CYCLOSPORINE [Suspect]
     Route: 065
  6. OMEPRAZOLE [Concomitant]
     Route: 048
     Dates: start: 20040909
  7. ATENOLOL [Concomitant]
     Route: 048
     Dates: start: 20041005
  8. COTRIMOXAZOLE [Concomitant]
     Route: 048
     Dates: start: 20040909
  9. TRIMETOZINE [Concomitant]
     Dates: start: 20040909

REACTIONS (1)
  - HERPES ZOSTER [None]
